FAERS Safety Report 9148833 (Version 3)
Quarter: 2013Q3

REPORT INFORMATION
  Report Type: Spontaneous
  Country: US (occurrence: US)
  Receive Date: 20130308
  Receipt Date: 20130716
  Transmission Date: 20140515
  Serious: Yes (Hospitalization, Other)
  Sender: FDA-Public Use
  Company Number: US-JNJFOC-20130302205

PATIENT
  Sex: Female

DRUGS (7)
  1. TOPAMAX [Suspect]
     Indication: COMPLEX PARTIAL SEIZURES
     Route: 048
     Dates: start: 2007
  2. TOPAMAX [Suspect]
     Indication: EPILEPSY
     Route: 048
     Dates: start: 2007
  3. DEPAKOTE [Suspect]
     Indication: COMPLEX PARTIAL SEIZURES
     Route: 048
  4. VALPROIC ACID [Suspect]
     Indication: COMPLEX PARTIAL SEIZURES
     Route: 048
  5. VALPROIC ACID [Suspect]
     Indication: COMPLEX PARTIAL SEIZURES
     Route: 048
  6. FOLATE [Concomitant]
     Route: 065
  7. PRENATAL VITAMINS [Concomitant]
     Route: 065

REACTIONS (3)
  - Premature labour [Recovered/Resolved]
  - Premature separation of placenta [Recovered/Resolved]
  - Exposure during pregnancy [Recovered/Resolved]
